FAERS Safety Report 10073183 (Version 2)
Quarter: 2014Q3

REPORT INFORMATION
  Report Type: Spontaneous
  Country: JP (occurrence: JP)
  Receive Date: 20140411
  Receipt Date: 20140731
  Transmission Date: 20150326
  Serious: Yes (Hospitalization, Other)
  Sender: FDA-Public Use
  Company Number: JP-TAKEDA-2014TEU001945

PATIENT
  Age: 74 Year
  Sex: Male

DRUGS (4)
  1. CEFMETAZON [Concomitant]
     Active Substance: CEFMETAZOLE SODIUM
     Indication: HEPATOCELLULAR CARCINOMA
     Dosage: 1G X 7
     Dates: start: 20130305, end: 20130306
  2. NEO-MINOPHAGEN C [Concomitant]
     Active Substance: AMMONIUM GLYCYRRHIZATE
     Indication: HEPATOCELLULAR CARCINOMA
     Dosage: 40 ML, BID
     Dates: start: 20130305, end: 20130326
  3. GASTER [Concomitant]
     Active Substance: FAMOTIDINE
     Indication: HEPATOCELLULAR CARCINOMA
     Dosage: 20 MG, QD
     Dates: start: 20130305, end: 20130306
  4. TACHOSIL [Suspect]
     Active Substance: FIBRINOGEN HUMAN\THROMBIN HUMAN
     Indication: PROPHYLAXIS
     Dosage: 1SHEET /1DAY
     Route: 065
     Dates: start: 20130305, end: 20130305

REACTIONS (2)
  - Liver abscess [Recovered/Resolved]
  - Portal vein thrombosis [Recovered/Resolved]

NARRATIVE: CASE EVENT DATE: 20130312
